FAERS Safety Report 16443156 (Version 3)
Quarter: 2019Q4

REPORT INFORMATION
  Report Type: Other
  Country: ES (occurrence: ES)
  Receive Date: 20190617
  Receipt Date: 20191106
  Transmission Date: 20200122
  Serious: Yes (Hospitalization)
  Sender: FDA-Public Use
  Company Number: ES-CELLTRION INC.-2019ES021898

PATIENT

DRUGS (16)
  1. FUROSEMIDA [FUROSEMIDE] [Concomitant]
     Active Substance: FUROSEMIDE
     Dosage: 40MG/24H
     Route: 048
  2. ADIRO [Concomitant]
     Active Substance: ASPIRIN
     Dosage: 100MG/24H
     Route: 048
     Dates: start: 20190424
  3. LUDIOMIL [MAPROTILINE HYDROCHLORIDE] [Concomitant]
     Dosage: 75MG/24H
     Route: 048
     Dates: start: 20160512
  4. DINISOR [Concomitant]
     Dosage: 120MG/12H
     Route: 048
     Dates: start: 20160112
  5. VALIUM [Concomitant]
     Active Substance: DIAZEPAM
     Dosage: 10MG/24H
     Dates: start: 20190421
  6. PARACETAMOL [Concomitant]
     Active Substance: ACETAMINOPHEN
     Dosage: PRN
     Dates: start: 2018
  7. BETAHISTINA [BETAHISTINE] [Concomitant]
     Dosage: PRN
     Route: 048
     Dates: start: 20180908
  8. BROMURO DE IPRATROPIO [Concomitant]
     Dosage: 500MCG/12H
     Route: 045
     Dates: start: 20190501, end: 20190511
  9. TRUXIMA [Suspect]
     Active Substance: RITUXIMAB-ABBS
     Indication: CHRONIC LYMPHOCYTIC LEUKAEMIA
     Dosage: 375 MG/M2
     Route: 051
     Dates: start: 20190314
  10. OMEPRAZOL ABDRUG [Concomitant]
     Dosage: 40MG/24H
     Route: 048
     Dates: start: 20190205
  11. BISOPROLOL [Concomitant]
     Active Substance: BISOPROLOL
     Dosage: 2.5MG/24H
     Route: 048
     Dates: start: 20180731
  12. TRUXIMA [Suspect]
     Active Substance: RITUXIMAB-ABBS
     Dosage: 100 MG/M2
     Route: 051
     Dates: start: 20190506
  13. HIDROFEROL [Concomitant]
     Active Substance: CALCIFEDIOL
     Dosage: 0.266MCG/MES
     Route: 048
     Dates: start: 20180927
  14. PROLIA [Concomitant]
     Active Substance: DENOSUMAB
     Dosage: 60MG/24S
     Dates: start: 20181129
  15. PALEXIA [Concomitant]
     Active Substance: TAPENTADOL HYDROCHLORIDE
     Dosage: UNK
     Dates: start: 20190421
  16. AMOXICILINA + AC.CLAVULANICO [Concomitant]
     Active Substance: AMOXICILLIN\CLAVULANIC ACID
     Dosage: CADA8H
     Route: 048
     Dates: start: 20190501, end: 20190511

REACTIONS (4)
  - Product use issue [Unknown]
  - Hepatotoxicity [Recovered/Resolved]
  - Underdose [Unknown]
  - Hepatitis [Recovered/Resolved]

NARRATIVE: CASE EVENT DATE: 20190315
